FAERS Safety Report 6143797-5 (Version None)
Quarter: 2009Q2

REPORT INFORMATION
  Report Type: 
  Country: None (occurrence: None)
  Receive Date: 20090403
  Receipt Date: 20090327
  Transmission Date: 20091009
  Serious: Yes (Other)
  Sender: FDA-Public Use
  Company Number: PHHY2009JP10010

PATIENT
  Age: 8 Year
  Sex: Male

DRUGS (4)
  1. SIMULECT [Suspect]
     Indication: RENAL TRANSPLANT
     Dosage: UNK
  2. TACROLIMUS [Suspect]
     Dosage: UNK
  3. METHYLPREDNISOLONE 4MG TAB [Suspect]
     Dosage: UNK
  4. MYCOPHENOLATE MOFETIL [Suspect]
     Dosage: UNK

REACTIONS (6)
  - DELAYED ENGRAFTMENT [None]
  - KIDNEY FIBROSIS [None]
  - NEPHROCALCINOSIS [None]
  - PARATHYROID GLAND ENLARGEMENT [None]
  - PARATHYROIDECTOMY [None]
  - RENAL TUBULAR ATROPHY [None]
